FAERS Safety Report 10209529 (Version 2)
Quarter: 2014Q2

REPORT INFORMATION
  Report Type: Report from Study
  Country: US (occurrence: US)
  Receive Date: 20140602
  Receipt Date: 20140610
  Transmission Date: 20141212
  Serious: Yes (Hospitalization)
  Sender: FDA-Public Use
  Company Number: US-ROCHE-1410427

PATIENT
  Age: 43 Year
  Sex: Male
  Weight: 71 kg

DRUGS (13)
  1. MYCOPHENOLATE MOFETIL [Suspect]
     Indication: RENAL TRANSPLANT
     Route: 048
     Dates: start: 20131025
  2. BASILIXIMAB [Suspect]
     Indication: RENAL TRANSPLANT
     Dosage: DAY 0 AND DAY 4 AS PER PROTOCOL
     Route: 042
     Dates: start: 20131024, end: 20131028
  3. TACROLIMUS [Suspect]
     Indication: RENAL TRANSPLANT
     Route: 048
     Dates: start: 20131025
  4. DELTASONE [Concomitant]
     Route: 065
  5. CYCLOPHOSPHAMIDE [Concomitant]
  6. TYLENOL [Concomitant]
     Route: 065
  7. BENADRYL (UNITED STATES) [Concomitant]
     Route: 065
  8. COLACE [Concomitant]
     Route: 065
  9. FERROUS SULFATE [Concomitant]
     Route: 065
  10. LOPRESSOR [Concomitant]
     Route: 065
  11. MIRALAX [Concomitant]
     Route: 065
  12. PRAVACHOL [Concomitant]
     Route: 065
  13. SENOKOT [Concomitant]
     Route: 065

REACTIONS (1)
  - Tooth abscess [Recovered/Resolved]
